FAERS Safety Report 14927452 (Version 1)
Quarter: 2018Q2

REPORT INFORMATION
  Report Type: Spontaneous
  Country: US (occurrence: US)
  Receive Date: 20180504
  Receipt Date: 20180504
  Transmission Date: 20180711
  Serious: Yes (Hospitalization)
  Sender: FDA-Public Use
  Company Number: None

PATIENT
  Age: 36 Year
  Sex: Female

DRUGS (1)
  1. KISQALI [Suspect]
     Active Substance: RIBOCICLIB
     Dosage: T TALETS DAILY
     Route: 048
     Dates: start: 20180330

REACTIONS (3)
  - Pyrexia [None]
  - Drug dose omission [None]
  - Infection [None]

NARRATIVE: CASE EVENT DATE: 20180422
